FAERS Safety Report 5058009-3 (Version None)
Quarter: 2006Q3

REPORT INFORMATION
  Report Type: 
  Country: None (occurrence: None)
  Receive Date: 20060721
  Receipt Date: 20060510
  Transmission Date: 20061208
  Serious: Yes (Disabling)
  Sender: FDA-Public Use
  Company Number: US-GLAXOSMITHKLINE-A0605092A

PATIENT
  Age: 86 Year
  Sex: Male
  Weight: 86.8 kg

DRUGS (4)
  1. AVANDIA [Suspect]
     Dosage: 8MG UNKNOWN
     Route: 048
     Dates: start: 20050901, end: 20060428
  2. LIPITOR [Concomitant]
     Dosage: 40MG PER DAY
     Route: 048
  3. GLUCOTROL XL [Concomitant]
     Dosage: 2.5MG PER DAY
     Route: 048
  4. MACRODANTIN [Concomitant]
     Dosage: 50MG PER DAY
     Route: 048

REACTIONS (2)
  - MACULAR OEDEMA [None]
  - VISUAL DISTURBANCE [None]
